FAERS Safety Report 16200640 (Version 1)
Quarter: 2019Q2

REPORT INFORMATION
  Report Type: Spontaneous
  Country: US (occurrence: US)
  Receive Date: 20190416
  Receipt Date: 20190416
  Transmission Date: 20190711
  Serious: No
  Sender: FDA-Public Use
  Company Number: US-AMGEN-USASP2019056379

PATIENT
  Age: 64 Year
  Sex: Female

DRUGS (2)
  1. DUAVEE [BAZEDOXIFENE ACETATE;ESTROGENS CONJUGATED] [Concomitant]
  2. PROLIA [Suspect]
     Active Substance: DENOSUMAB
     Indication: OSTEOPOROSIS
     Dosage: 60 MILLIGRAM, Q6MO
     Route: 065
     Dates: start: 201406

REACTIONS (1)
  - Malpositioned teeth [Not Recovered/Not Resolved]
